FAERS Safety Report 14074905 (Version 4)
Quarter: 2018Q4

REPORT INFORMATION
  Report Type: Spontaneous
  Country: US (occurrence: US)
  Receive Date: 20171010
  Receipt Date: 20181218
  Transmission Date: 20190204
  Serious: Yes (Other)
  Sender: FDA-Public Use
  Company Number: US-PFIZER INC-2017430830

PATIENT
  Age: 62 Year
  Sex: Female
  Weight: 86.17 kg

DRUGS (1)
  1. XELJANZ XR [Suspect]
     Active Substance: TOFACITINIB CITRATE
     Indication: RHEUMATOID ARTHRITIS
     Dosage: 11 MG, DAILY
     Route: 048
     Dates: start: 201707

REACTIONS (9)
  - Fluid retention [Unknown]
  - Movement disorder [Unknown]
  - Pain [Recovering/Resolving]
  - Sleep apnoea syndrome [Unknown]
  - Concussion [Unknown]
  - Post-traumatic neck syndrome [Unknown]
  - Fall [Unknown]
  - Arthralgia [Unknown]
  - Mastitis [Unknown]

NARRATIVE: CASE EVENT DATE: 201708
